FAERS Safety Report 25042531 (Version 1)
Quarter: 2025Q1

REPORT INFORMATION
  Report Type: Spontaneous
  Country: US (occurrence: None)
  Receive Date: 20250228
  Receipt Date: 20250228
  Transmission Date: 20250409
  Serious: No
  Sender: FDA-CTU
  Company Number: None

PATIENT
  Age: 19 Year
  Sex: Female
  Weight: 65.32 kg

DRUGS (5)
  1. LEVOFLOXACIN [Suspect]
     Active Substance: LEVOFLOXACIN
     Dates: start: 20241209, end: 20241216
  2. CLINDAMYCIN [Suspect]
     Active Substance: CLINDAMYCIN
     Dates: start: 20241209, end: 20241216
  3. DIETARY SUPPLEMENT\PROBIOTICS [Suspect]
     Active Substance: DIETARY SUPPLEMENT\PROBIOTICS NOS
     Dates: start: 20241216, end: 20241222
  4. DOXYCYCLINE [Suspect]
     Active Substance: DOXYCYCLINE
  5. TEA [Suspect]
     Active Substance: TEA LEAF

REACTIONS (3)
  - Drug-induced liver injury [None]
  - Hepatic steatosis [None]
  - Gallbladder oedema [None]

NARRATIVE: CASE EVENT DATE: 20241223
